FAERS Safety Report 5025892-7 (Version None)
Quarter: 2006Q2

REPORT INFORMATION
  Report Type: 
  Country: None (occurrence: None)
  Receive Date: 20060608
  Receipt Date: 20060605
  Transmission Date: 20061013
  Serious: Yes (Hospitalization)
  Sender: FDA-Public Use
  Company Number: 233288K06USA

PATIENT
  Age: 41 Year
  Sex: Male
  Weight: 117.9352 kg

DRUGS (1)
  1. REBIF [Suspect]
     Indication: MULTIPLE SCLEROSIS
     Dosage: 44 MCG 3 IN 1 WEEKS, SUBCUTANEOUS
     Route: 058
     Dates: start: 20050615

REACTIONS (5)
  - ASTHENIA [None]
  - CONDITION AGGRAVATED [None]
  - DIFFICULTY IN WALKING [None]
  - MULTIPLE SCLEROSIS [None]
  - TOOTH ABSCESS [None]
